FAERS Safety Report 9648889 (Version 2)
Quarter: 2013Q4

REPORT INFORMATION
  Report Type: Spontaneous
  Country: US (occurrence: US)
  Receive Date: 20131028
  Receipt Date: 20131028
  Transmission Date: 20140711
  Serious: Yes (Other)
  Sender: FDA-Public Use
  Company Number: US-ROCHE-1284231

PATIENT
  Age: 57 Year
  Sex: Female
  Weight: 62.65 kg

DRUGS (4)
  1. AVASTIN [Suspect]
     Indication: METASTATIC RENAL CELL CARCINOMA
     Route: 042
     Dates: start: 201210, end: 201307
  2. INTERFERON ALFA [Concomitant]
  3. LASIX [Concomitant]
  4. MS CONTIN [Concomitant]

REACTIONS (3)
  - Bursitis [Recovering/Resolving]
  - Cellulitis [Recovering/Resolving]
  - Infection [Unknown]
